FAERS Safety Report 16842648 (Version 2)
Quarter: 2019Q4

REPORT INFORMATION
  Report Type: Spontaneous
  Country: US (occurrence: US)
  Receive Date: 20190924
  Receipt Date: 20191010
  Transmission Date: 20200122
  Serious: Yes (Hospitalization, Other)
  Sender: FDA-Public Use
  Company Number: US-ACADIA PHARMACEUTICALS INC.-ACA-2019-014165

PATIENT
  Age: 78 Year
  Sex: Male

DRUGS (5)
  1. PIMAVANSERIN [Suspect]
     Active Substance: PIMAVANSERIN
     Indication: PSYCHOTIC DISORDER
  2. QUETIAPINE. [Concomitant]
     Active Substance: QUETIAPINE
     Indication: PRODUCT USED FOR UNKNOWN INDICATION
     Dosage: TITRATED TO 50 MG AT BEDTIME
  3. PIMAVANSERIN [Suspect]
     Active Substance: PIMAVANSERIN
     Indication: HALLUCINATION, VISUAL
  4. PIMAVANSERIN [Suspect]
     Active Substance: PIMAVANSERIN
     Indication: PARKINSON^S DISEASE PSYCHOSIS
     Dosage: 34 MG, QD
     Route: 065
  5. PIMAVANSERIN [Suspect]
     Active Substance: PIMAVANSERIN
     Indication: DELUSION

REACTIONS (7)
  - Catatonia [Recovered/Resolved]
  - Encephalopathy [Recovered/Resolved]
  - Mobility decreased [Recovered/Resolved]
  - Sedation [Recovered/Resolved]
  - Confusional state [Recovered/Resolved]
  - Dehydration [Recovered/Resolved]
  - Lethargy [Recovered/Resolved]
